FAERS Safety Report 25133773 (Version 1)
Quarter: 2025Q1

REPORT INFORMATION
  Report Type: Spontaneous
  Country: US (occurrence: US)
  Receive Date: 20250328
  Receipt Date: 20250328
  Transmission Date: 20250409
  Serious: No
  Sender: TAKEDA
  Company Number: US-TAKEDA-2025TUS031790

PATIENT
  Age: 55 Year
  Sex: Female
  Weight: 135 kg

DRUGS (1)
  1. CUVITRU [Suspect]
     Active Substance: HUMAN IMMUNOGLOBULIN G
     Indication: Myasthenia gravis
     Dosage: 40 GRAM, 1/WEEK
     Dates: start: 202410

REACTIONS (3)
  - No adverse event [Unknown]
  - Product storage error [Unknown]
  - Product use in unapproved indication [Unknown]
